FAERS Safety Report 16567861 (Version 1)
Quarter: 2019Q3

REPORT INFORMATION
  Report Type: Spontaneous
  Country: CL (occurrence: CL)
  Receive Date: 20190712
  Receipt Date: 20190712
  Transmission Date: 20191004
  Serious: Yes (Other)
  Sender: FDA-Public Use
  Company Number: CL-MYLANLABS-2019M1065926

PATIENT
  Age: 21 Year
  Sex: Male

DRUGS (1)
  1. LEPONEX [Suspect]
     Active Substance: CLOZAPINE
     Indication: PRODUCT USED FOR UNKNOWN INDICATION
     Dosage: 4 DOSAGE FORM, PM

REACTIONS (2)
  - Neutropenia [Recovered/Resolved]
  - Full blood count abnormal [Recovered/Resolved]

NARRATIVE: CASE EVENT DATE: 20180707
